FAERS Safety Report 8838489 (Version 1)
Quarter: 2012Q4

REPORT INFORMATION
  Report Type: 
  Country: US (occurrence: US)
  Receive Date: 20121012
  Receipt Date: 20121012
  Transmission Date: 20130627
  Serious: No
  Sender: FDA-Public Use
  Company Number: US-BAYER-2012-107290

PATIENT
  Age: 37 Year
  Sex: Female
  Weight: 67.57 kg

DRUGS (16)
  1. BETASERON [Suspect]
     Route: 058
  2. KLONOPIN [Concomitant]
     Dosage: 1 mg, UNK
     Route: 048
  3. PANTOPRAZOLE [Concomitant]
     Dosage: 20 mg, UNK
     Route: 048
  4. Z-PAK [Concomitant]
     Route: 048
  5. ONDANSETRON [Concomitant]
     Dosage: 24 mg, UNK
     Route: 048
  6. MECLIZINE [Concomitant]
     Dosage: 25 mg, UNK
  7. AMITRIPTYLIN [Concomitant]
     Dosage: 100 mg, UNK
     Route: 048
  8. CAMILA [Concomitant]
     Dosage: 0.35 mg, UNK
     Route: 048
  9. PREDNISONE [Concomitant]
     Dosage: 10 mg, UNK
  10. CALCIUM WITH VITAMIN D [Concomitant]
  11. FISH OIL [Concomitant]
     Route: 048
  12. DONATUSS DC SYP [Concomitant]
  13. MULTI MAX [Concomitant]
     Route: 048
  14. OMEGA 3 [Concomitant]
  15. ALBUTEROL [Concomitant]
  16. HYDROCHLOROTHIAZIDE WITH TRIAMTERENE [Concomitant]
     Route: 048

REACTIONS (3)
  - Upper respiratory tract infection [Unknown]
  - Depression [Unknown]
  - Tendonitis [Unknown]
